FAERS Safety Report 9248250 (Version 3)
Quarter: 2013Q2

REPORT INFORMATION
  Report Type: Spontaneous
  Country: JP (occurrence: JP)
  Receive Date: 20130423
  Receipt Date: 20130528
  Transmission Date: 20140414
  Serious: Yes (Other)
  Sender: FDA-Public Use
  Company Number: JP-AMGEN-JPNSP2013027724

PATIENT
  Age: 69 Year
  Sex: Female

DRUGS (2)
  1. ENBREL [Suspect]
     Indication: RHEUMATOID ARTHRITIS
     Dosage: 25 MG, WEEKLY
     Route: 058
  2. MINOMYCIN [Suspect]
     Indication: PSORIASIS
     Dosage: 200 MG, QD
     Dates: start: 20130321, end: 20130404

REACTIONS (3)
  - Differential white blood cell count abnormal [Recovered/Resolved]
  - Oedema peripheral [Unknown]
  - White blood cell count decreased [Recovered/Resolved]
